FAERS Safety Report 5053323-X (Version None)
Quarter: 2006Q3

REPORT INFORMATION
  Report Type: 
  Country: None (occurrence: None)
  Receive Date: 20060706
  Receipt Date: 20060425
  Transmission Date: 20061208
  Serious: Yes (Hospitalization)
  Sender: FDA-Public Use
  Company Number: 2006BH010647

PATIENT
  Age: 31 Year
  Sex: Male
  Weight: 80 kg

DRUGS (2)
  1. ADVATE (OCTOCOG ALFA) [Suspect]
     Indication: HAEMARTHROSIS
     Dosage: 2000 IU; AS NEEDED
     Dates: start: 20051215, end: 20051215
  2. HUMAN FACTOR VIII [Concomitant]

REACTIONS (5)
  - HYPERLIPIDAEMIA [None]
  - HYPERTENSION [None]
  - MYOCARDIAL INFARCTION [None]
  - VASCULAR STENOSIS [None]
  - VENTRICULAR FIBRILLATION [None]
